FAERS Safety Report 19744543 (Version 1)
Quarter: 2021Q3

REPORT INFORMATION
  Report Type: Spontaneous
  Country: US (occurrence: US)
  Receive Date: 20210821
  Receipt Date: 20210821
  Transmission Date: 20211014
  Serious: Yes (Hospitalization)
  Sender: FDA-Public Use
  Company Number: None

PATIENT
  Age: 41 Year
  Sex: Male
  Weight: 99 kg

DRUGS (4)
  1. TAXOL [Suspect]
     Active Substance: PACLITAXEL
     Dates: end: 20201123
  2. CISPLATIN. [Suspect]
     Active Substance: CISPLATIN
     Dates: end: 20201127
  3. IFOSFAMIDE. [Suspect]
     Active Substance: IFOSFAMIDE
     Dates: end: 20201127
  4. NEULASTA [Suspect]
     Active Substance: PEGFILGRASTIM
     Dates: end: 20201128

REACTIONS (1)
  - Infection [None]

NARRATIVE: CASE EVENT DATE: 20201130
